FAERS Safety Report 15202656 (Version 2)
Quarter: 2018Q3

REPORT INFORMATION
  Report Type: Spontaneous
  Country: FR (occurrence: FR)
  Receive Date: 20180726
  Receipt Date: 20180810
  Transmission Date: 20181010
  Serious: Yes (Hospitalization, Other)
  Sender: FDA-Public Use
  Company Number: FR-AUROBINDO-AUR-APL-2018-037169

PATIENT
  Age: 27 Year
  Sex: Female
  Weight: 59 kg

DRUGS (5)
  1. FLUOXETINE [Suspect]
     Active Substance: FLUOXETINE HYDROCHLORIDE
     Indication: SUICIDE ATTEMPT
     Dosage: 840 MG, TOTAL
     Route: 048
     Dates: start: 20180614, end: 20180614
  2. AMISULPRIDE [Suspect]
     Active Substance: AMISULPRIDE
     Indication: SUICIDE ATTEMPT
     Dosage: 48 DOSAGE FORM, TOTAL
     Route: 048
     Dates: start: 20180614, end: 20180614
  3. TERCIAN                            /00759301/ [Suspect]
     Active Substance: CYAMEMAZINE
     Indication: SUICIDE ATTEMPT
     Dosage: 15 MILLILITER, TOTAL
     Route: 048
     Dates: start: 20180614, end: 20180614
  4. LAMOTRIGINE. [Suspect]
     Active Substance: LAMOTRIGINE
     Indication: SUICIDE ATTEMPT
     Dosage: 1500 MG, TOTAL
     Route: 048
     Dates: start: 20180614, end: 20180614
  5. THERALENE [Suspect]
     Active Substance: TRIMEPRAZINE
     Indication: SUICIDE ATTEMPT
     Dosage: 15 MILLILITER, TOTAL
     Route: 048
     Dates: start: 20180614, end: 20180614

REACTIONS (3)
  - Rhabdomyolysis [Recovered/Resolved]
  - Intentional overdose [Unknown]
  - Acute respiratory failure [Recovered/Resolved]

NARRATIVE: CASE EVENT DATE: 20180615
